FAERS Safety Report 5601070-5 (Version None)
Quarter: 2008Q1

REPORT INFORMATION
  Report Type: 
  Country: None (occurrence: None)
  Receive Date: 20080108
  Receipt Date: 20061215
  Transmission Date: 20080703
  Serious: Yes (Hospitalization)
  Sender: FDA-Public Use
  Company Number: PERC20060090

PATIENT
  Age: 48 Year
  Sex: Male
  Weight: 80.7403 kg

DRUGS (14)
  1. PERCOCET [Suspect]
     Indication: PAIN IN EXTREMITY
     Dosage: 2 TABS Q4H, PER ORAL
     Route: 048
     Dates: start: 20060110, end: 20060215
  2. CELEBREX [Suspect]
     Dosage: 100 MG BID, PER ORAL
     Route: 048
     Dates: start: 20060110, end: 20060215
  3. SU-011,248 (SUNITINIB) 50 MG [Suspect]
     Indication: RENAL CELL CARCINOMA
     Dosage: 50 MG DAILY, PER ORAL
     Route: 048
     Dates: start: 20060124
  4. METHADONE HCL [Suspect]
     Indication: PAIN
     Dosage: 20 MG BID, PER ORAL
     Route: 048
     Dates: start: 20060110
  5. BACLOFEN [Suspect]
     Dosage: 10 MG TID, PER ORAL
     Route: 048
     Dates: start: 20060110, end: 20060215
  6. MINOCYCLINE HCL [Concomitant]
  7. LEXAPRO [Concomitant]
  8. PROTONIX [Concomitant]
  9. AMBIEN [Concomitant]
  10. NEURONTIN [Concomitant]
  11. COMPAZINE [Concomitant]
  12. SENNA [Concomitant]
  13. LACTULOSE [Concomitant]
  14. COLACE (DOCUSATE) [Concomitant]

REACTIONS (2)
  - CONFUSIONAL STATE [None]
  - ENCEPHALOPATHY [None]
